FAERS Safety Report 19629407 (Version 5)
Quarter: 2024Q2

REPORT INFORMATION
  Report Type: Report from Study
  Country: US (occurrence: US)
  Receive Date: 20210729
  Receipt Date: 20240617
  Transmission Date: 20240716
  Serious: Yes (Other)
  Sender: FDA-Public Use
  Company Number: US-MERCK HEALTHCARE KGAA-9254169

PATIENT
  Age: 55 Year
  Sex: Female

DRUGS (3)
  1. REBIF [Suspect]
     Active Substance: INTERFERON BETA-1A
     Indication: Multiple sclerosis
     Dosage: WEEK 1 AND 2
     Route: 058
     Dates: start: 20210226
  2. REBIF [Suspect]
     Active Substance: INTERFERON BETA-1A
     Dosage: WEEK 3 AND 4
     Route: 058
     Dates: start: 2021
  3. REBIF [Suspect]
     Active Substance: INTERFERON BETA-1A
     Dosage: WEEK 5 AND THEREAFTER
     Route: 058

REACTIONS (9)
  - Tendon rupture [Unknown]
  - Oesophageal food impaction [Unknown]
  - Back pain [Not Recovered/Not Resolved]
  - Influenza like illness [Recovering/Resolving]
  - Liver function test increased [Not Recovered/Not Resolved]
  - Hepatic steatosis [Unknown]
  - Decreased interest [Unknown]
  - Anhedonia [Unknown]
  - Pain [Unknown]

NARRATIVE: CASE EVENT DATE: 20210101
